FAERS Safety Report 4383581-6 (Version None)
Quarter: 2004Q2

REPORT INFORMATION
  Report Type: 
  Country: None (occurrence: None)
  Receive Date: 20040618
  Receipt Date: 20040601
  Transmission Date: 20050107
  Serious: Yes (Death, Hospitalization)
  Sender: FDA-Public Use
  Company Number: 20040600315

PATIENT
  Age: 54 Year
  Sex: Male

DRUGS (14)
  1. DURAMORPH (MORPHINE SULFATE, BAXTER) [Suspect]
     Indication: PAIN
     Dates: end: 20040516
  2. BACLOFEN [Suspect]
     Indication: PAIN
     Dates: end: 20040516
  3. AMBIEN [Concomitant]
  4. AMITRIPTYLINE HCL [Concomitant]
  5. COUMADIN [Concomitant]
  6. OCYBUTYNIN [Concomitant]
  7. VALIUM [Concomitant]
  8. LIPITOR [Concomitant]
  9. MACRODANTIN [Concomitant]
  10. NEURONTIN [Concomitant]
  11. PROZAC [Concomitant]
  12. ZANAFLEX [Concomitant]
  13. MIRALAX [Concomitant]
  14. PERI-COLACE [Concomitant]

REACTIONS (7)
  - GASTROINTESTINAL DISORDER [None]
  - HYPOTENSION [None]
  - MENTAL STATUS CHANGES [None]
  - OVERDOSE [None]
  - PNEUMONIA ASPIRATION [None]
  - PYREXIA [None]
  - RESPIRATORY FAILURE [None]
